FAERS Safety Report 5156937-1 (Version None)
Quarter: 2006Q4

REPORT INFORMATION
  Report Type: 
  Country: None (occurrence: None)
  Receive Date: 20061123
  Receipt Date: 20061108
  Transmission Date: 20070319
  Serious: Yes (Congenital Anomaly)
  Sender: FDA-Public Use
  Company Number: GB-JNJFOC-20061105275

PATIENT

DRUGS (3)
  1. TRAMADOL HCL [Suspect]
     Indication: DRUG EXPOSURE DURING PREGNANCY
  2. CO-DYDRAMOL [Suspect]
     Indication: DRUG EXPOSURE DURING PREGNANCY
     Route: 064
  3. IMIPRAMINE [Suspect]
     Indication: DRUG EXPOSURE DURING PREGNANCY
     Route: 064

REACTIONS (2)
  - CONGENITAL MULTIPLEX ARTHROGRYPOSIS [None]
  - DRUG EXPOSURE DURING PREGNANCY [None]
